FAERS Safety Report 4848869-0 (Version None)
Quarter: 2005Q4

REPORT INFORMATION
  Report Type: 
  Country: None (occurrence: None)
  Receive Date: 20051208
  Receipt Date: 20051206
  Transmission Date: 20060501
  Serious: Yes (Hospitalization)
  Sender: FDA-Public Use
  Company Number: GB-MERCK-0512GBR00035

PATIENT
  Age: 82 Year
  Sex: Female

DRUGS (9)
  1. ZOCOR [Suspect]
     Route: 048
     Dates: start: 20051028, end: 20051119
  2. ACETAMINOPHEN [Concomitant]
     Route: 048
  3. METFORMIN [Concomitant]
     Route: 048
  4. CLOPIDOGREL BISULFATE [Concomitant]
     Route: 048
  5. ATENOLOL [Concomitant]
     Route: 048
  6. BENDROFLUMETHIAZIDE [Concomitant]
     Route: 048
  7. RAMIPRIL [Concomitant]
     Route: 048
  8. MESALAMINE [Concomitant]
     Route: 048
  9. DILTIAZEM MALATE [Concomitant]
     Route: 048

REACTIONS (1)
  - MYOSITIS [None]
